FAERS Safety Report 17159132 (Version 1)
Quarter: 2019Q4

REPORT INFORMATION
  Report Type: Report from Study
  Country: PH (occurrence: PH)
  Receive Date: 20191216
  Receipt Date: 20191216
  Transmission Date: 20200122
  Serious: Yes (Other)
  Sender: FDA-Public Use
  Company Number: PH-OTSUKA-2019_041405

PATIENT
  Sex: Male

DRUGS (1)
  1. ARIPIPRAZOLE. [Suspect]
     Active Substance: ARIPIPRAZOLE
     Indication: PSYCHOMOTOR HYPERACTIVITY
     Dosage: 5 MG, QD
     Route: 048
     Dates: start: 2014

REACTIONS (7)
  - Weight increased [Unknown]
  - Drug ineffective for unapproved indication [Unknown]
  - Movement disorder [Unknown]
  - Snoring [Unknown]
  - Anger [Unknown]
  - Laziness [Unknown]
  - Hyperphagia [Unknown]

NARRATIVE: CASE EVENT DATE: 2014
